FAERS Safety Report 5211746-X (Version None)
Quarter: 2007Q1

REPORT INFORMATION
  Report Type: 
  Country: None (occurrence: None)
  Receive Date: 20070116
  Receipt Date: 20061228
  Transmission Date: 20070707
  Serious: No
  Sender: FDA-Public Use
  Company Number: E2090-00145-SPO-JP

PATIENT
  Age: 9 Year
  Sex: Male

DRUGS (4)
  1. EXCEGRAN(ZONISAMIDE) [Suspect]
     Indication: PARTIAL SEIZURES
     Dosage: 120 + 280 MG, 2 IN 1 D, ORAL - SEE IMAGE
     Route: 048
     Dates: start: 20051130, end: 20051221
  2. EXCEGRAN(ZONISAMIDE) [Suspect]
     Indication: PARTIAL SEIZURES
     Dosage: 120 + 280 MG, 2 IN 1 D, ORAL - SEE IMAGE
     Route: 048
     Dates: start: 20060119, end: 20061127
  3. VALPROATE SODIUM [Concomitant]
  4. CARBAMAZEPINE [Concomitant]

REACTIONS (3)
  - ABNORMAL BEHAVIOUR [None]
  - MOOD ALTERED [None]
  - PERSONALITY CHANGE [None]
